FAERS Safety Report 4668941-8 (Version None)
Quarter: 2005Q2

REPORT INFORMATION
  Report Type: 
  Country: None (occurrence: None)
  Receive Date: 20050523
  Receipt Date: 20050201
  Transmission Date: 20051028
  Serious: Yes (Hospitalization)
  Sender: FDA-Public Use
  Company Number: US-GLAXOSMITHKLINE-A0543479A

PATIENT
  Age: 48 Year
  Sex: Female
  Weight: 75 kg

DRUGS (9)
  1. BC HEADACHE POWDER [Suspect]
     Indication: MIGRAINE
     Route: 048
     Dates: start: 20010101, end: 20041102
  2. OXYCONTIN [Suspect]
     Indication: FIBROMYALGIA
     Route: 048
  3. DURAGESIC-100 [Suspect]
  4. ELAVIL [Concomitant]
     Indication: HYSTERECTOMY
     Route: 048
     Dates: end: 20050405
  5. KLONOPIN [Concomitant]
     Indication: RESTLESS LEGS SYNDROME
     Route: 048
  6. RANITIDINE [Concomitant]
     Route: 048
  7. NARCOTIC ANALGESIC [Concomitant]
  8. NEXIUM [Concomitant]
  9. DARVOCET [Concomitant]

REACTIONS (20)
  - AORTIC DISORDER [None]
  - ATELECTASIS [None]
  - BLOOD CREATINE PHOSPHOKINASE INCREASED [None]
  - CONFUSIONAL STATE [None]
  - DEPRESSION [None]
  - DRUG ABUSER [None]
  - EAR HAEMORRHAGE [None]
  - GASTRIC HAEMORRHAGE [None]
  - GASTRITIS [None]
  - HAEMATEMESIS [None]
  - LETHARGY [None]
  - LOBAR PNEUMONIA [None]
  - LOSS OF CONSCIOUSNESS [None]
  - LUNG INFILTRATION [None]
  - MOUTH HAEMORRHAGE [None]
  - OVERDOSE [None]
  - OXYGEN SATURATION DECREASED [None]
  - PNEUMONIA ASPIRATION [None]
  - PNEUMONITIS [None]
  - SINUS TACHYCARDIA [None]
